FAERS Safety Report 22257981 (Version 7)
Quarter: 2023Q4

REPORT INFORMATION
  Report Type: Spontaneous
  Country: US (occurrence: US)
  Receive Date: 20230427
  Receipt Date: 20231002
  Transmission Date: 20240110
  Serious: Yes (Hospitalization)
  Sender: FDA-Public Use
  Company Number: US-BRISTOL-MYERS SQUIBB COMPANY-2023-056370

PATIENT
  Age: 85 Year
  Sex: Female

DRUGS (1)
  1. POMALYST [Suspect]
     Active Substance: POMALIDOMIDE
     Indication: Plasma cell myeloma recurrent
     Dosage: TAKE 1 CAPSULE BY MOUTH EVERY DAY FOR 21 DAYS THEN 7 DAYS REST WITH NO MEDICATION
     Route: 048
     Dates: start: 20200212

REACTIONS (2)
  - Chest pain [Recovering/Resolving]
  - Sepsis [Not Recovered/Not Resolved]
